FAERS Safety Report 8619257-6 (Version None)
Quarter: 2012Q3

REPORT INFORMATION
  Report Type: 
  Country: None (occurrence: None)
  Receive Date: 20120810
  Receipt Date: 20120727
  Transmission Date: 20120928
  Serious: Yes (Death)
  Sender: FDA-Public Use
  Company Number: 2012080010

PATIENT
  Age: 17 Year
  Sex: Female

DRUGS (4)
  1. HYDROCODONE BITARTRATE [Suspect]
  2. CARISOPRODOL [Suspect]
  3. OXYCODONE HCL [Suspect]
  4. METHADONE HYDROCHLORIDE [Suspect]

REACTIONS (2)
  - ADVERSE REACTION [None]
  - TOXICITY TO VARIOUS AGENTS [None]
